FAERS Safety Report 10034787 (Version 1)
Quarter: 2014Q1

REPORT INFORMATION
  Report Type: Spontaneous
  Country: US (occurrence: None)
  Receive Date: 20140306
  Receipt Date: 20140306
  Transmission Date: 20141002
  Serious: Yes (Other)
  Sender: FDA-Public Use
  Company Number: 163-21880-13074042

PATIENT
  Age: 76 Year
  Sex: Female
  Weight: 67.13 kg

DRUGS (16)
  1. ADVAIR DISKUS (SERETIDE MITE) (UNKNOWN) [Concomitant]
  2. LEVOTHYROXINE (LEVOTHYROXINE) (UNKNOWN) [Concomitant]
  3. FUROSEMIDE (FUROSEMIDE) (UNKNOWN) [Concomitant]
  4. CLOPIDOGREL (CLOPIDOGREL) (UNKNOWN) [Concomitant]
  5. LISINOPRIL (LISINOPRIL) (UNKNOWN) [Concomitant]
  6. PANTOPRAZOLE (PANTOPRAZOLE) (UNKNOWN) [Concomitant]
  7. SIMVASTATIN (SIMVASTATIN) (UNKNOWN) [Concomitant]
  8. CALCIUM (CALCIUM) (UNKNOWN) [Concomitant]
  9. ALBUTEROL (SALBUTAMOL) (UNKNOWN) [Concomitant]
  10. REVLIMID [Suspect]
     Indication: MYELODYSPLASTIC SYNDROME
     Dosage: 10 MG, 21 IN 21 D, PO
     Route: 048
     Dates: start: 20130422, end: 20130625
  11. ZOCOR (SIMVASTATIN) [Concomitant]
  12. PRILOSEC (OMEPRAZOLE) [Concomitant]
  13. LASIX (FUROSEMIDE) [Concomitant]
  14. PLAVIX (CLOPIDOGREL SULFATE) (UNKNOWN) [Concomitant]
  15. NORCO (VICODIN) (UNKNOWN) [Concomitant]
  16. MULTIVITAMINS (MULTIVITAMINS) (UNKNOWN) [Concomitant]

REACTIONS (3)
  - Acute myeloid leukaemia [None]
  - Myelodysplastic syndrome transformation [None]
  - Haemoglobin decreased [None]
